FAERS Safety Report 25849483 (Version 2)
Quarter: 2025Q4

REPORT INFORMATION
  Report Type: Report from Study
  Country: US (occurrence: US)
  Receive Date: 20250926
  Receipt Date: 20251021
  Transmission Date: 20260117
  Serious: No
  Sender: BRISTOL-MYERS SQUIBB COMPANY
  Company Number: US-BRISTOL-MYERS SQUIBB COMPANY-2025-131626

PATIENT
  Age: 84 Year
  Sex: Female
  Weight: 90.26 kg

DRUGS (2)
  1. ORENCIA [Suspect]
     Active Substance: ABATACEPT
     Indication: Rheumatoid arthritis
     Dosage: FREQ: WEEKLY EVERY TUESDAY
  2. ORENCIA [Suspect]
     Active Substance: ABATACEPT
     Dosage: FREQ: WEEKLY EVERY TUESDAY

REACTIONS (3)
  - Physical disability [Unknown]
  - Device operational issue [Unknown]
  - Finger deformity [Unknown]
